APPROVED DRUG PRODUCT: HYDROXYZINE HYDROCHLORIDE
Active Ingredient: HYDROXYZINE HYDROCHLORIDE
Strength: 25MG
Dosage Form/Route: TABLET;ORAL
Application: A087820 | Product #001
Applicant: KV PHARMACEUTICAL CO
Approved: Jun 23, 1982 | RLD: No | RS: No | Type: DISCN